FAERS Safety Report 23587105 (Version 1)
Quarter: 2024Q1

REPORT INFORMATION
  Report Type: Spontaneous
  Country: US (occurrence: None)
  Receive Date: 20240301
  Receipt Date: 20240301
  Transmission Date: 20240410
  Serious: Yes (Hospitalization)
  Sender: FDA-Public Use
  Company Number: None

PATIENT
  Sex: Female

DRUGS (2)
  1. PROMACTA [Suspect]
     Active Substance: ELTROMBOPAG OLAMINE
     Indication: Malignant mast cell neoplasm
     Dosage: FREQUENCY : DAILY;?
     Route: 048
     Dates: start: 20240202
  2. AYVAKIT [Concomitant]
     Active Substance: AVAPRITINIB

REACTIONS (2)
  - Pneumonia [None]
  - Migraine [None]
